FAERS Safety Report 17919892 (Version 6)
Quarter: 2020Q4

REPORT INFORMATION
  Report Type: Spontaneous
  Country: US (occurrence: US)
  Receive Date: 20200620
  Receipt Date: 20201230
  Transmission Date: 20210113
  Serious: No
  Sender: FDA-Public Use
  Company Number: US-GLAXOSMITHKLINE-US2020AMR099852

PATIENT
  Sex: Female

DRUGS (6)
  1. ZEJULA [Suspect]
     Active Substance: NIRAPARIB
     Dosage: 100 MG, QD
     Dates: start: 20200528
  2. ZEJULA [Suspect]
     Active Substance: NIRAPARIB
     Dosage: 100 MG, QD
  3. ZEJULA [Suspect]
     Active Substance: NIRAPARIB
     Dosage: 100 MG, QD
  4. ZEJULA [Suspect]
     Active Substance: NIRAPARIB
     Dosage: 100 MG, QD
  5. ZEJULA [Suspect]
     Active Substance: NIRAPARIB
     Dosage: 100 MG, QD
     Route: 048
  6. ZEJULA [Suspect]
     Active Substance: NIRAPARIB
     Indication: OVARIAN CANCER
     Dosage: 200 MG, QD
     Dates: start: 20200528

REACTIONS (12)
  - Malaise [Recovered/Resolved]
  - Alopecia [Unknown]
  - Neck pain [Unknown]
  - Oropharyngeal pain [Unknown]
  - Red blood cell count decreased [Unknown]
  - Nodule [Unknown]
  - Fatigue [Recovering/Resolving]
  - Platelet count decreased [Unknown]
  - Nausea [Unknown]
  - Pain [Recovered/Resolved]
  - Haematocrit decreased [Unknown]
  - Laboratory test abnormal [Unknown]
